FAERS Safety Report 8418063-5 (Version None)
Quarter: 2012Q2

REPORT INFORMATION
  Report Type: 
  Country: None (occurrence: None)
  Receive Date: 20120607
  Receipt Date: 20120601
  Transmission Date: 20120825
  Serious: Yes (Other)
  Sender: FDA-Public Use
  Company Number: US-JNJFOC-20120601950

PATIENT
  Age: 72 Year
  Sex: Female

DRUGS (3)
  1. BENADRYL [Suspect]
     Indication: PRURITUS
     Route: 048
     Dates: start: 20120530, end: 20120531
  2. COUMADIN [Concomitant]
     Indication: CARDIAC DISORDER
     Dosage: ALL OTHER EVENINGS EXCEPT MONDAY AND FRIDAY
     Route: 065
  3. COUMADIN [Concomitant]
     Dosage: ON MONDAY AND FRIDAY EVENINGS
     Route: 065

REACTIONS (5)
  - SLOW RESPONSE TO STIMULI [None]
  - DYSARTHRIA [None]
  - OFF LABEL USE [None]
  - HALLUCINATION [None]
  - GAIT DISTURBANCE [None]
